FAERS Safety Report 19503657 (Version 1)
Quarter: 2021Q3

REPORT INFORMATION
  Report Type: Spontaneous
  Country: JP (occurrence: JP)
  Receive Date: 20210707
  Receipt Date: 20210707
  Transmission Date: 20211014
  Serious: Yes (Other)
  Sender: FDA-Public Use
  Company Number: JP-LUPIN PHARMACEUTICALS INC.-2021-10758

PATIENT
  Age: 48 Year
  Sex: Female

DRUGS (3)
  1. ROSUVASTATIN. [Suspect]
     Active Substance: ROSUVASTATIN
     Indication: DYSLIPIDAEMIA
     Dosage: 2.5 MILLIGRAM
     Route: 065
     Dates: start: 201603, end: 201809
  2. FENOFIBRATE. [Suspect]
     Active Substance: FENOFIBRATE
     Indication: HYPERTRIGLYCERIDAEMIA
     Dosage: 80 MILLIGRAM
     Route: 065
     Dates: start: 201606, end: 201709
  3. TOCOPHEROL [Concomitant]
     Active Substance: TOCOPHEROL
     Indication: HYPERTRIGLYCERIDAEMIA
     Dosage: 400 MILLIGRAM
     Route: 065
     Dates: start: 201803, end: 201809

REACTIONS (2)
  - Dehydration [Recovering/Resolving]
  - Renal impairment [Recovering/Resolving]

NARRATIVE: CASE EVENT DATE: 201709
